FAERS Safety Report 19362958 (Version 2)
Quarter: 2021Q2

REPORT INFORMATION
  Report Type: Spontaneous
  Country: US (occurrence: US)
  Receive Date: 20210602
  Receipt Date: 20210609
  Transmission Date: 20210717
  Serious: Yes (Other)
  Sender: FDA-Public Use
  Company Number: US-ASTRAZENECA-2021A480172

PATIENT
  Sex: Female
  Weight: 46.3 kg

DRUGS (1)
  1. SYMBICORT [Suspect]
     Active Substance: BUDESONIDE\FORMOTEROL FUMARATE DIHYDRATE
     Indication: CHRONIC OBSTRUCTIVE PULMONARY DISEASE
     Route: 055
     Dates: start: 202105

REACTIONS (8)
  - Oesophageal disorder [Unknown]
  - Lung disorder [Unknown]
  - Osteoporosis [Unknown]
  - Dyspnoea [Unknown]
  - Product use issue [Unknown]
  - Oesophageal pain [Unknown]
  - Device issue [Unknown]
  - Discomfort [Unknown]

NARRATIVE: CASE EVENT DATE: 202105
